FAERS Safety Report 5072297-9 (Version None)
Quarter: 2006Q3

REPORT INFORMATION
  Report Type: 
  Country: None (occurrence: None)
  Receive Date: 20060714
  Receipt Date: 20060328
  Transmission Date: 20061208
  Serious: No
  Sender: FDA-Public Use
  Company Number: 06P-163-0329425-00

PATIENT
  Sex: Male

DRUGS (1)
  1. ULTANE [Suspect]
     Dates: start: 20060216, end: 20060216

REACTIONS (1)
  - ANAESTHETIC COMPLICATION [None]
